FAERS Safety Report 4597572-3 (Version None)
Quarter: 2005Q1

REPORT INFORMATION
  Report Type: 
  Country: None (occurrence: None)
  Receive Date: 20050228
  Receipt Date: 20050228
  Transmission Date: 20050727
  Serious: Yes (Other)
  Sender: FDA-Public Use
  Company Number: None

PATIENT
  Age: 50 Year
  Sex: Female
  Weight: 88.905 kg

DRUGS (1)
  1. EFFEXOR XR [Suspect]
     Indication: BACK PAIN
     Dosage: 1 DAILY
     Dates: start: 20041101, end: 20050206

REACTIONS (6)
  - AGORAPHOBIA [None]
  - DEPRESSION [None]
  - DRUG WITHDRAWAL SYNDROME [None]
  - IMPAIRED DRIVING ABILITY [None]
  - INFLUENZA LIKE ILLNESS [None]
  - SPINAL OPERATION [None]
